FAERS Safety Report 6728735-6 (Version None)
Quarter: 2010Q2

REPORT INFORMATION
  Report Type: 
  Country: None (occurrence: None)
  Receive Date: 20100517
  Receipt Date: 20100512
  Transmission Date: 20101027
  Serious: Yes (Death)
  Sender: FDA-Public Use
  Company Number: JP-MERCK-1005USA01677

PATIENT
  Age: 64 Year
  Sex: Male

DRUGS (4)
  1. JANUVIA [Suspect]
     Indication: DIABETES MELLITUS
     Route: 048
     Dates: start: 20100121
  2. DEPAS [Concomitant]
     Route: 048
     Dates: start: 20100413
  3. HYZAAR [Concomitant]
     Indication: HYPERTENSION
     Route: 048
  4. MEVALOTIN [Concomitant]
     Indication: DYSLIPIDAEMIA
     Route: 048
     Dates: start: 20090401

REACTIONS (1)
  - COMPLETED SUICIDE [None]
